FAERS Safety Report 7410499-4 (Version None)
Quarter: 2011Q2

REPORT INFORMATION
  Report Type: 
  Country: None (occurrence: None)
  Receive Date: 20110413
  Receipt Date: 20110404
  Transmission Date: 20111010
  Serious: Yes (Hospitalization)
  Sender: FDA-Public Use
  Company Number: US-BIOGENIDEC-2011BI008905

PATIENT
  Age: 40 Year
  Sex: Female

DRUGS (7)
  1. WELLBUTRIN [Concomitant]
  2. DIAZEPAM [Concomitant]
     Route: 048
  3. GEODON [Concomitant]
     Indication: BIPOLAR DISORDER
     Route: 048
  4. AMANTADINE HCL [Concomitant]
     Route: 048
  5. TYSABRI [Suspect]
     Indication: MULTIPLE SCLEROSIS
     Route: 042
     Dates: start: 20080930
  6. CYMBALTA [Concomitant]
     Indication: BIPOLAR DISORDER
  7. FISH OIL [Concomitant]

REACTIONS (4)
  - POST-TRAUMATIC HEADACHE [None]
  - MUSCULAR WEAKNESS [None]
  - URINARY TRACT INFECTION [None]
  - HEAD INJURY [None]
